FAERS Safety Report 10090514 (Version 1)
Quarter: 2014Q2

REPORT INFORMATION
  Report Type: Report from Study
  Country: FR (occurrence: FR)
  Receive Date: 20140421
  Receipt Date: 20140421
  Transmission Date: 20141212
  Serious: Yes (Other)
  Sender: FDA-Public Use
  Company Number: PHHY2014FR048019

PATIENT
  Age: 43 Year
  Sex: Female

DRUGS (4)
  1. MYCOPHENOLIC ACID [Suspect]
     Indication: IMMUNOSUPPRESSION
     Dosage: 1440 MG, UNK
     Dates: start: 20130921
  2. MYCOPHENOLIC ACID [Suspect]
     Dosage: 720 MG, QD
     Dates: end: 20140417
  3. SOLUPRED [Concomitant]
     Indication: IMMUNOSUPPRESSION
     Dosage: 7.5 MG, QD
  4. PROGRAF [Concomitant]
     Indication: IMMUNOSUPPRESSION
     Dosage: 8 MG, QD

REACTIONS (2)
  - Hepatitis [Recovered/Resolved]
  - Gastroenteritis [Recovered/Resolved]
